FAERS Safety Report 22748229 (Version 2)
Quarter: 2023Q4

REPORT INFORMATION
  Report Type: Report from Study
  Country: CA (occurrence: CA)
  Receive Date: 20230725
  Receipt Date: 20231107
  Transmission Date: 20240109
  Serious: No
  Sender: FDA-Public Use
  Company Number: CA-SANDOZ-SDZ2023CA005393

PATIENT
  Sex: Female

DRUGS (1)
  1. ERELZI [Suspect]
     Active Substance: ETANERCEPT-SZZS
     Indication: Ankylosing spondylitis
     Dosage: 50 MG
     Route: 058
     Dates: start: 20210909

REACTIONS (5)
  - Headache [Unknown]
  - Injection site swelling [Unknown]
  - Psoriasis [Unknown]
  - Condition aggravated [Unknown]
  - Drug ineffective [Unknown]
